FAERS Safety Report 18681129 (Version 1)
Quarter: 2020Q4

REPORT INFORMATION
  Report Type: Spontaneous
  Country: FR (occurrence: FR)
  Receive Date: 20201230
  Receipt Date: 20201230
  Transmission Date: 20210114
  Serious: No
  Sender: FDA-Public Use
  Company Number: FR-LUPIN PHARMACEUTICALS INC.-2020-11063

PATIENT
  Age: 19 Year

DRUGS (6)
  1. PHENELZINE [Suspect]
     Active Substance: PHENELZINE
     Indication: BIPOLAR DISORDER
     Dosage: 45 MILLIGRAM, QD-FOLLOWED BY 60MG
     Route: 065
  2. KETAMINE [Suspect]
     Active Substance: KETAMINE
     Indication: BIPOLAR DISORDER
     Dosage: UNK-9 INFUSIONS OF KETAMINE SPACED 72 HOURS APART
     Route: 065
  3. LITHIUM. [Suspect]
     Active Substance: LITHIUM
     Indication: BIPOLAR DISORDER
     Dosage: 800 MILLIGRAM, QD
     Route: 016
  4. LAMOTRIGINE. [Suspect]
     Active Substance: LAMOTRIGINE
     Indication: BIPOLAR DISORDER
     Dosage: 200 MILLIGRAM, QD
     Route: 065
  5. ARIPIPRAZOLE. [Suspect]
     Active Substance: ARIPIPRAZOLE
     Indication: BIPOLAR DISORDER
     Dosage: 15 MILLIGRAM, QD
     Route: 065
  6. PHENELZINE [Suspect]
     Active Substance: PHENELZINE
     Dosage: 60 MILLIGRAM, QD
     Route: 065

REACTIONS (2)
  - Drug ineffective [Unknown]
  - Off label use [Unknown]
